FAERS Safety Report 8901495 (Version 4)
Quarter: 2013Q2

REPORT INFORMATION
  Report Type: Spontaneous
  Country: US (occurrence: US)
  Receive Date: 20121108
  Receipt Date: 20130430
  Transmission Date: 20140414
  Serious: Yes (Hospitalization)
  Sender: FDA-Public Use
  Company Number: US-009507513-1211USA000394

PATIENT
  Sex: Female
  Weight: 90.7 kg

DRUGS (2)
  1. NUVARING [Suspect]
     Indication: CONTRACEPTION
     Dosage: UNK
     Route: 067
     Dates: start: 20090908, end: 20110315
  2. NUVARING [Suspect]
     Dosage: UNK

REACTIONS (5)
  - Coagulopathy [Unknown]
  - Deep vein thrombosis [Unknown]
  - Depression [Unknown]
  - Obesity [Unknown]
  - Lymph node palpable [Unknown]
